FAERS Safety Report 15295450 (Version 2)
Quarter: 2018Q3

REPORT INFORMATION
  Report Type: Spontaneous
  Country: CH (occurrence: CH)
  Receive Date: 20180820
  Receipt Date: 20180831
  Transmission Date: 20181010
  Serious: Yes (Other)
  Sender: FDA-Public Use
  Company Number: PHHY2018CH074489

PATIENT
  Sex: Male

DRUGS (2)
  1. RIMACTAN SANDOZ [Suspect]
     Active Substance: RIFAMPIN
     Indication: POST PROCEDURAL INFECTION
     Dosage: UNK
     Route: 065
  2. CIPROFLOXACIN SANDOZ [Suspect]
     Active Substance: CIPROFLOXACIN
     Indication: POST PROCEDURAL INFECTION
     Dosage: UNK
     Route: 065

REACTIONS (6)
  - Chromaturia [Not Recovered/Not Resolved]
  - Dizziness [Not Recovered/Not Resolved]
  - Mental disorder [Not Recovered/Not Resolved]
  - Faeces discoloured [Not Recovered/Not Resolved]
  - Nausea [Not Recovered/Not Resolved]
  - Diarrhoea [Not Recovered/Not Resolved]
